FAERS Safety Report 18854158 (Version 1)
Quarter: 2021Q1

REPORT INFORMATION
  Report Type: Spontaneous
  Country: JP (occurrence: JP)
  Receive Date: 20210205
  Receipt Date: 20210205
  Transmission Date: 20210420
  Serious: Yes (Death, Other)
  Sender: FDA-Public Use
  Company Number: JP-CELGENEUS-JPN-20210200686

PATIENT
  Age: 78 Year
  Sex: Male
  Weight: 54.8 kg

DRUGS (7)
  1. ABRAXANE [Suspect]
     Active Substance: PACLITAXEL
     Indication: LUNG CANCER METASTATIC
     Route: 041
     Dates: start: 20190703, end: 20190819
  2. POLARAMINE [Concomitant]
     Active Substance: DEXCHLORPHENIRAMINE MALEATE
     Indication: PRODUCT USED FOR UNKNOWN INDICATION
     Dosage: 5 MILLIGRAM
     Route: 041
     Dates: start: 20190703, end: 20190819
  3. DEXART [Concomitant]
     Active Substance: DEXAMETHASONE SODIUM PHOSPHATE
     Indication: METASTASES TO BONE
     Dosage: 9.9 MILLIGRAM
     Route: 041
     Dates: start: 20190703, end: 20190819
  4. CARBOPLATIN. [Suspect]
     Active Substance: CARBOPLATIN
     Indication: LUNG CANCER METASTATIC
     Dosage: 340 MILLIGRAM
     Route: 041
     Dates: start: 20190703, end: 20190819
  5. KEYTRUDA [Suspect]
     Active Substance: PEMBROLIZUMAB
     Indication: LUNG CANCER METASTATIC
     Dosage: 200 MILLIGRAM
     Route: 041
     Dates: start: 20190703, end: 20190819
  6. PROEMEND [Concomitant]
     Active Substance: FOSAPREPITANT
     Indication: LUNG CANCER METASTATIC
     Dosage: 150 MILLIGRAM
     Route: 041
     Dates: start: 20190703, end: 20190819
  7. ALOXI [Suspect]
     Active Substance: PALONOSETRON HYDROCHLORIDE
     Indication: LUNG CANCER METASTATIC
     Dosage: .75 MILLIGRAM
     Route: 041
     Dates: start: 20190703, end: 20190819

REACTIONS (3)
  - Respiratory failure [Fatal]
  - Pneumonia [Recovering/Resolving]
  - White blood cell count decreased [Unknown]

NARRATIVE: CASE EVENT DATE: 20190809
